FAERS Safety Report 15702159 (Version 2)
Quarter: 2019Q1

REPORT INFORMATION
  Report Type: Spontaneous
  Country: US (occurrence: US)
  Receive Date: 20181209
  Receipt Date: 20190123
  Transmission Date: 20190417
  Serious: No
  Sender: FDA-Public Use
  Company Number: US-ASTRAZENECA-2018SF52104

PATIENT
  Age: 23674 Day
  Sex: Female

DRUGS (1)
  1. SYMBICORT [Suspect]
     Active Substance: BUDESONIDE\FORMOTEROL FUMARATE DIHYDRATE
     Indication: ASTHMA
     Dosage: 160/4.5 UG, UNKNOWN FREQUENCY UNKNOWN
     Route: 055

REACTIONS (5)
  - Malaise [Unknown]
  - Fatigue [Unknown]
  - Device malfunction [Unknown]
  - Wheezing [Unknown]
  - Pneumonia [Unknown]

NARRATIVE: CASE EVENT DATE: 20181115
